FAERS Safety Report 9739547 (Version 1)
Quarter: 2013Q4

REPORT INFORMATION
  Report Type: Spontaneous
  Country: CH (occurrence: CH)
  Receive Date: 20131209
  Receipt Date: 20131209
  Transmission Date: 20140711
  Serious: Yes (Death)
  Sender: FDA-Public Use
  Company Number: US-ASTRAZENECA-2013SE89500

PATIENT
  Age: 75 Year
  Sex: Female

DRUGS (10)
  1. CUBICIN [Suspect]
     Indication: ENTEROCOCCAL INFECTION
     Route: 042
  2. CUBICIN [Suspect]
     Indication: STAPHYLOCOCCAL INFECTION
     Route: 042
  3. CUBICIN [Suspect]
     Indication: OSTEOMYELITIS
     Route: 042
  4. CUBICIN [Suspect]
     Indication: OFF LABEL USE
     Route: 042
  5. MEROPENEM [Suspect]
     Indication: STAPHYLOCOCCAL INFECTION
     Route: 042
  6. MEROPENEM [Suspect]
     Indication: ENTEROCOCCAL INFECTION
     Route: 042
  7. MEROPENEM [Suspect]
     Indication: OSTEOMYELITIS
     Route: 042
  8. CIPROFLOXACIN [Suspect]
     Indication: STAPHYLOCOCCAL INFECTION
     Route: 042
  9. CIPROFLOXACIN [Suspect]
     Indication: ENTEROCOCCAL INFECTION
     Route: 042
  10. CIPROFLOXACIN [Suspect]
     Indication: OSTEOMYELITIS
     Route: 042

REACTIONS (1)
  - Urosepsis [Fatal]
